FAERS Safety Report 6940882-2 (Version None)
Quarter: 2010Q3

REPORT INFORMATION
  Report Type: 
  Country: None (occurrence: None)
  Receive Date: 20100825
  Receipt Date: 20100816
  Transmission Date: 20110219
  Serious: Yes (Hospitalization)
  Sender: FDA-Public Use
  Company Number: US-ASTRAZENECA-2010SE38343

PATIENT
  Age: 42 Year
  Sex: Female

DRUGS (1)
  1. SEROQUEL XR [Suspect]
     Indication: SCHIZOPHRENIA, PARANOID TYPE
     Dosage: 200 MG IN AM AND 800 MG HS
     Route: 048
     Dates: start: 20030101

REACTIONS (1)
  - PSYCHIATRIC DECOMPENSATION [None]
